FAERS Safety Report 10950203 (Version 4)
Quarter: 2015Q4

REPORT INFORMATION
  Report Type: Spontaneous
  Country: US (occurrence: US)
  Receive Date: 20150324
  Receipt Date: 20151105
  Transmission Date: 20160304
  Serious: Yes (Life-Threatening, Congenital Anomaly, Other)
  Sender: FDA-Public Use
  Company Number: US-ELI_LILLY_AND_COMPANY-US201503005484

PATIENT
  Age: 0 Day

DRUGS (5)
  1. PHENERGAN [Concomitant]
     Active Substance: PROMETHAZINE HYDROCHLORIDE
     Indication: HYPEREMESIS GRAVIDARUM
     Route: 065
  2. PROZAC [Suspect]
     Active Substance: FLUOXETINE HYDROCHLORIDE
     Indication: PRODUCT USED FOR UNKNOWN INDICATION
     Dosage: UNK, UNKNOWN
     Route: 065
  3. EFFEXOR [Concomitant]
     Active Substance: VENLAFAXINE HYDROCHLORIDE
     Indication: PRODUCT USED FOR UNKNOWN INDICATION
     Dosage: 75 MG, UNK
     Dates: end: 20050323
  4. PAXIL [Concomitant]
     Active Substance: PAROXETINE HYDROCHLORIDE
     Indication: PRODUCT USED FOR UNKNOWN INDICATION
     Dosage: 20 MG, UNK
     Route: 065
  5. PRENATAL                           /00231801/ [Concomitant]
     Indication: PRODUCT USED FOR UNKNOWN INDICATION
     Route: 065

REACTIONS (14)
  - Gastroschisis [Unknown]
  - Nonreassuring foetal heart rate pattern [Unknown]
  - Dysphagia [Unknown]
  - Umbilical cord around neck [Recovered/Resolved]
  - Exposure during pregnancy [Recovered/Resolved]
  - Polydactyly [Unknown]
  - Foetal hypokinesia [Recovered/Resolved]
  - Oligohydramnios [Recovered/Resolved]
  - Foetal distress syndrome [Recovered/Resolved]
  - Talipes [Unknown]
  - Pupils unequal [Unknown]
  - Vesicoureteric reflux [Unknown]
  - Premature baby [Unknown]
  - Congenital multiplex arthrogryposis [Unknown]

NARRATIVE: CASE EVENT DATE: 20051003
